FAERS Safety Report 20972922 (Version 1)
Quarter: 2022Q2

REPORT INFORMATION
  Report Type: Spontaneous
  Country: US (occurrence: US)
  Receive Date: 20220617
  Receipt Date: 20220617
  Transmission Date: 20220721
  Serious: No
  Sender: FDA-Public Use
  Company Number: US-009507513-2205USA007354

PATIENT
  Sex: Female

DRUGS (32)
  1. KEYTRUDA [Suspect]
     Active Substance: PEMBROLIZUMAB
     Indication: Product used for unknown indication
  2. VENETOCLAX [Concomitant]
     Active Substance: VENETOCLAX
  3. ZOVIRAX [Concomitant]
     Active Substance: ACYCLOVIR
  4. XANAX [Concomitant]
     Active Substance: ALPRAZOLAM
  5. METHYLPREDNISOLONE [Concomitant]
     Active Substance: METHYLPREDNISOLONE
  6. WELLBUTRIN XL [Concomitant]
     Active Substance: BUPROPION HYDROCHLORIDE
  7. FIORICET [Concomitant]
     Active Substance: ACETAMINOPHEN\BUTALBITAL\CAFFEINE
  8. VITAMIN B12 [Concomitant]
     Active Substance: CYANOCOBALAMIN
  9. COLACE [Concomitant]
     Active Substance: DOCUSATE SODIUM
  10. LEVOFLOXACIN [Concomitant]
     Active Substance: LEVOFLOXACIN
  11. FLORINEF ACETATE [Concomitant]
     Active Substance: FLUDROCORTISONE ACETATE
  12. PROZAC [Concomitant]
     Active Substance: FLUOXETINE HYDROCHLORIDE
  13. PROCTOSOL HC [Concomitant]
  14. DILAUDID [Concomitant]
     Active Substance: HYDROMORPHONE HYDROCHLORIDE
  15. CRESEMBA [Concomitant]
     Active Substance: ISAVUCONAZONIUM SULFATE
  16. KEPPRA [Concomitant]
     Active Substance: LEVETIRACETAM
  17. LEVAQUIN [Concomitant]
     Active Substance: LEVOFLOXACIN
  18. SYNTHROID [Concomitant]
     Active Substance: LEVOTHYROXINE SODIUM
  19. EMLA [Concomitant]
     Active Substance: LIDOCAINE\PRILOCAINE
  20. SYMPROIC [Concomitant]
     Active Substance: NALDEMEDINE
  21. NARCAN [Concomitant]
     Active Substance: NALOXONE HYDROCHLORIDE
  22. CLARITHROMYCIN [Concomitant]
     Active Substance: CLARITHROMYCIN
  23. ZOFRAN [Concomitant]
     Active Substance: ONDANSETRON HYDROCHLORIDE
  24. OXYCONTIN [Concomitant]
     Active Substance: OXYCODONE HYDROCHLORIDE
  25. OMEPRAZOLE [Concomitant]
     Active Substance: OMEPRAZOLE
  26. PYRIDIUM [Concomitant]
     Active Substance: PHENAZOPYRIDINE
  27. MICRO K [Concomitant]
  28. POTASSIUM PHOSPHATE, MONOBASIC [Concomitant]
     Active Substance: POTASSIUM PHOSPHATE, MONOBASIC
  29. LYRICA [Concomitant]
     Active Substance: PREGABALIN
  30. MAXALT-MLT [Concomitant]
     Active Substance: RIZATRIPTAN BENZOATE
  31. SENOKOT [Concomitant]
     Active Substance: SENNOSIDES
  32. ZOCOR [Concomitant]
     Active Substance: SIMVASTATIN

REACTIONS (1)
  - Urticaria [Unknown]
